FAERS Safety Report 7022844 (Version 3)
Quarter: 2020Q2

REPORT INFORMATION
  Report Type: Spontaneous
  Country: NL (occurrence: NL)
  Receive Date: 20090615
  Receipt Date: 20200416
  Transmission Date: 20200714
  Serious: Yes (Other)
  Sender: FDA-Public Use
  Company Number: NL-JNJFOC-20090604193

PATIENT
  Sex: Male
  Weight: 28 kg

DRUGS (1)
  1. KETOCONAZOL [Suspect]
     Active Substance: KETOCONAZOLE
     Indication: TESTOTOXICOSIS
     Route: 065

REACTIONS (7)
  - Product use in unapproved indication [Unknown]
  - Polyuria [Unknown]
  - Diabetes insipidus [Unknown]
  - Off label use [Unknown]
  - Brain neoplasm [Unknown]
  - Blood corticotrophin increased [Unknown]
  - Hypopituitarism [Unknown]
